FAERS Safety Report 8451534 (Version 2)
Quarter: 2012Q4

REPORT INFORMATION
  Report Type: 
  Country: US (occurrence: US)
  Receive Date: 20120309
  Receipt Date: 20120927
  Transmission Date: 20130627
  Serious: No
  Sender: FDA-Public Use
  Company Number: US-AMGEN-USASP2012006393

PATIENT
  Sex: Female

DRUGS (19)
  1. PROLIA [Suspect]
     Indication: OSTEOPENIA
     Dosage: 60 mg, q6mo
     Route: 058
     Dates: start: 201011
  2. VITAMIN D NOS [Concomitant]
     Dosage: 1 mg, qd
  3. VITAMIN D NOS [Concomitant]
     Dosage: 1 IU, UNK
  4. COQ10 [Concomitant]
     Dosage: 1 mg, qd
  5. VITAMIN C [Concomitant]
     Dosage: UNK UNK, qd
  6. CALCIUM CITRATE [Concomitant]
     Dosage: 1 mg, qd
  7. HYDROCHLOROTHIAZIDE [Concomitant]
     Dosage: 1 mg, qd
  8. LINSEED OIL [Concomitant]
     Dosage: UNK
  9. B50 COMPLEX [Concomitant]
     Dosage: UNK UNK, qd
  10. ALPHAGAN P [Concomitant]
     Dosage: UNK UNK, qd
     Dates: start: 2011, end: 20120130
  11. AZOPT [Concomitant]
     Dosage: UNK
     Dates: start: 2011, end: 2011
  12. COSOPT OCUMET.PLUS [Concomitant]
     Dosage: UNK
  13. TRAVATAN [Concomitant]
     Dosage: UNK
  14. TRAVATAN Z [Concomitant]
     Dosage: UNK
  15. LUMIGAN [Concomitant]
     Dosage: 1 %, UNK
  16. LUMIGAN [Concomitant]
     Dosage: 0.3 %, UNK
  17. FLAXSEED OIL [Concomitant]
     Dosage: UNK
  18. CALCIUM [Concomitant]
  19. VITAMIN D3 [Concomitant]

REACTIONS (8)
  - Lymphocyte count decreased [Unknown]
  - Joint range of motion decreased [Not Recovered/Not Resolved]
  - Feeling abnormal [Not Recovered/Not Resolved]
  - Fatigue [Not Recovered/Not Resolved]
  - Pruritus [Not Recovered/Not Resolved]
  - Fall [Unknown]
  - Cataract [Not Recovered/Not Resolved]
  - Pain in extremity [Not Recovered/Not Resolved]
